FAERS Safety Report 24564725 (Version 1)
Quarter: 2024Q4

REPORT INFORMATION
  Report Type: Spontaneous
  Country: US (occurrence: None)
  Receive Date: 20241029
  Receipt Date: 20241029
  Transmission Date: 20250115
  Serious: No
  Sender: Public
  Company Number: None

PATIENT
  Age: 82 Year
  Sex: Female
  Weight: 65.8 kg

DRUGS (1)
  1. ATEZOLIZUMAB [Suspect]
     Active Substance: ATEZOLIZUMAB
     Indication: Non-small cell lung cancer
     Dosage: FREQUENCY : EVERY THREE WEEKS;?
     Route: 058

REACTIONS (2)
  - Actinic keratosis [None]
  - Lichenoid keratosis [None]

NARRATIVE: CASE EVENT DATE: 20240903
